FAERS Safety Report 20151778 (Version 3)
Quarter: 2022Q1

REPORT INFORMATION
  Report Type: Spontaneous
  Country: US (occurrence: US)
  Receive Date: 20211206
  Receipt Date: 20220131
  Transmission Date: 20220424
  Serious: No
  Sender: FDA-Public Use
  Company Number: US-BAYER-2021A262638

PATIENT
  Age: 16 Year
  Sex: Female

DRUGS (1)
  1. KYLEENA [Suspect]
     Active Substance: LEVONORGESTREL
     Indication: Intra-uterine contraceptive device insertion
     Dosage: 17.5?G/DAY
     Route: 015
     Dates: start: 20210824, end: 2021

REACTIONS (2)
  - Heavy menstrual bleeding [Recovered/Resolved]
  - Device expulsion [Recovered/Resolved]

NARRATIVE: CASE EVENT DATE: 20211013
